FAERS Safety Report 18744367 (Version 2)
Quarter: 2024Q1

REPORT INFORMATION
  Report Type: Spontaneous
  Country: IT (occurrence: IT)
  Receive Date: 20210114
  Receipt Date: 20240129
  Transmission Date: 20240410
  Serious: Yes (Other)
  Sender: FDA-Public Use
  Company Number: IT-MLMSERVICE-20180813-1331817-1

PATIENT
  Age: 6 Decade
  Sex: Female

DRUGS (20)
  1. EXEMESTANE [Suspect]
     Active Substance: EXEMESTANE
     Indication: Invasive lobular breast carcinoma
     Dosage: 25 MILLIGRAM, ONCE A DAY, 25 MG/DIE
     Route: 065
  2. EXEMESTANE [Suspect]
     Active Substance: EXEMESTANE
     Indication: Malignant neoplasm progression
     Dosage: 25 MILLIGRAM, ONCE A DAY, PROGRESSION OF PRE-EXISTING CANCER
     Route: 065
  3. PACLITAXEL [Suspect]
     Active Substance: PACLITAXEL
     Indication: Invasive lobular breast carcinoma
     Dosage: 260 MILLIGRAM/SQ. METER, TRI-WEEKLY, FIRST LINE TREATMENT
     Route: 065
     Dates: start: 201404
  4. PACLITAXEL [Suspect]
     Active Substance: PACLITAXEL
     Indication: Malignant neoplasm progression
  5. PACLITAXEL [Suspect]
     Active Substance: PACLITAXEL
     Indication: Metastases to bone
  6. PACLITAXEL [Suspect]
     Active Substance: PACLITAXEL
     Indication: Metastases to liver
  7. PACLITAXEL [Suspect]
     Active Substance: PACLITAXEL
     Indication: Metastases to lymph nodes
  8. PACLITAXEL [Suspect]
     Active Substance: PACLITAXEL
     Indication: Metastases to skin
  9. PACLITAXEL [Suspect]
     Active Substance: PACLITAXEL
     Indication: Metastases to pleura
  10. ZOLEDRONIC ACID [Suspect]
     Active Substance: ZOLEDRONIC ACID
     Indication: Invasive lobular breast carcinoma
     Dosage: UNK, CYCLICAL
     Route: 065
     Dates: start: 201404
  11. ZOLEDRONIC ACID [Suspect]
     Active Substance: ZOLEDRONIC ACID
     Indication: Malignant neoplasm progression
  12. ZOLEDRONIC ACID [Suspect]
     Active Substance: ZOLEDRONIC ACID
     Indication: Metastases to bone
  13. ZOLEDRONIC ACID [Suspect]
     Active Substance: ZOLEDRONIC ACID
     Indication: Metastases to lymph nodes
  14. ZOLEDRONIC ACID [Suspect]
     Active Substance: ZOLEDRONIC ACID
     Indication: Metastases to liver
  15. ZOLEDRONIC ACID [Suspect]
     Active Substance: ZOLEDRONIC ACID
     Indication: Metastases to pleura
  16. ZOLEDRONIC ACID [Suspect]
     Active Substance: ZOLEDRONIC ACID
     Indication: Metastases to skin
  17. ERIBULIN MESYLATE [Suspect]
     Active Substance: ERIBULIN MESYLATE
     Indication: Invasive lobular breast carcinoma
     Dosage: 1.23 MILLIGRAM/SQ. METER, ADMINISTERED ON DAYS 1 AND 8 OF A 21-DAY CYCLE
     Route: 065
  18. EVEROLIMUS [Suspect]
     Active Substance: EVEROLIMUS
     Indication: Invasive lobular breast carcinoma
     Dosage: 10 MILLIGRAM, ONCE A DAY, 10 MG/DIE
     Route: 065
  19. EVEROLIMUS [Suspect]
     Active Substance: EVEROLIMUS
     Indication: Malignant neoplasm progression
     Dosage: 10 MILLIGRAM, ONCE A DAY, FIRST LINE TREATMENT
     Route: 065
  20. FULVESTRANT [Concomitant]
     Active Substance: FULVESTRANT
     Indication: Disease progression
     Dosage: 500 MILLIGRAM, SECOND LINE THERAPY
     Route: 065
     Dates: start: 201311

REACTIONS (4)
  - Mucosal inflammation [Unknown]
  - Neuropathy peripheral [Unknown]
  - Alopecia [Unknown]
  - Asthenia [Unknown]
